FAERS Safety Report 8249908-X (Version None)
Quarter: 2012Q2

REPORT INFORMATION
  Report Type: 
  Country: None (occurrence: None)
  Receive Date: 20120402
  Receipt Date: 20120327
  Transmission Date: 20120825
  Serious: Yes (Hospitalization)
  Sender: FDA-Public Use
  Company Number: PHHY2011CA16652

PATIENT
  Sex: Female

DRUGS (3)
  1. ZOLEDRONOC ACID [Suspect]
     Route: 042
     Dates: start: 20120327
  2. ZOLEDRONOC ACID [Suspect]
     Route: 042
     Dates: start: 20100120
  3. ZOLEDRONOC ACID [Suspect]
     Indication: OSTEOPOROSIS
     Route: 042
     Dates: start: 20090114

REACTIONS (2)
  - ABDOMINAL DISCOMFORT [None]
  - INFUSION SITE EXTRAVASATION [None]
